FAERS Safety Report 7900309-0 (Version None)
Quarter: 2011Q4

REPORT INFORMATION
  Report Type: 
  Country: None (occurrence: None)
  Receive Date: 20111108
  Receipt Date: 20110125
  Transmission Date: 20120403
  Serious: No
  Sender: FDA-Public Use
  Company Number: US-BAYER-2011-011036

PATIENT
  Age: 69 Year
  Sex: Female

DRUGS (2)
  1. CLIMARA [Suspect]
     Dosage: 0.05 MG, UNK
     Dates: start: 19970101
  2. CLIMARA [Suspect]
     Dosage: 0.075 MG, UNK

REACTIONS (2)
  - DRUG EFFECT DECREASED [None]
  - HEADACHE [None]
